FAERS Safety Report 4346508-9 (Version None)
Quarter: 2004Q2

REPORT INFORMATION
  Report Type: 
  Country: None (occurrence: None)
  Receive Date: 20040426
  Receipt Date: 20031006
  Transmission Date: 20050107
  Serious: No
  Sender: FDA-Public Use
  Company Number: US-BRISTOL-MYERS SQUIBB COMPANY-12403838

PATIENT
  Age: 57 Year
  Sex: Female
  Weight: 81 kg

DRUGS (4)
  1. CARBOPLATIN [Suspect]
     Indication: OVARIAN CANCER
     Route: 042
     Dates: start: 20030829, end: 20031002
  2. GEMZAR [Suspect]
     Indication: OVARIAN CANCER
  3. PEPCID [Concomitant]
     Indication: PREMEDICATION
     Route: 042
     Dates: start: 20031002, end: 20031002
  4. ANZEMET [Concomitant]
     Indication: PREMEDICATION
     Route: 042
     Dates: start: 20031002, end: 20031002

REACTIONS (1)
  - HYPERSENSITIVITY [None]
